FAERS Safety Report 13592960 (Version 1)
Quarter: 2017Q2

REPORT INFORMATION
  Report Type: Spontaneous
  Country: GB (occurrence: GB)
  Receive Date: 20170530
  Receipt Date: 20170530
  Transmission Date: 20170830
  Serious: Yes (Death, Other)
  Sender: FDA-Public Use
  Company Number: GB-PFIZER INC-2017235452

PATIENT
  Age: 69 Year
  Sex: Female

DRUGS (8)
  1. SULPHASALAZINE [Concomitant]
     Active Substance: SULFASALAZINE
     Dosage: 500 MG, DAILY
  2. HYDROXYCHLOROQUINE [Concomitant]
     Active Substance: HYDROXYCHLOROQUINE
     Dosage: 200 MG, 1X/DAY
  3. FENACTOL [Concomitant]
     Indication: PAIN
     Dosage: UNK
  4. SULPHASALAZINE [Concomitant]
     Active Substance: SULFASALAZINE
     Dosage: 1 G, 2X/DAY
  5. FOLIC ACID. [Concomitant]
     Active Substance: FOLIC ACID
     Dosage: 1 DF, WEEKLY
  6. HYDROXYCHLOROQUINE [Concomitant]
     Active Substance: HYDROXYCHLOROQUINE
     Dosage: 400 MG, DAILY
  7. METHOTREXATE SODIUM. [Suspect]
     Active Substance: METHOTREXATE SODIUM
     Indication: RHEUMATOID ARTHRITIS
     Dosage: 15 MG, WEEKLY
     Dates: start: 201006
  8. PARACETAMOL [Concomitant]
     Active Substance: ACETAMINOPHEN
     Indication: PAIN
     Dosage: UNK

REACTIONS (9)
  - Oxygen saturation decreased [Not Recovered/Not Resolved]
  - Rales [Unknown]
  - Dyspnoea [Unknown]
  - Pulmonary fibrosis [Fatal]
  - Bronchiectasis [Unknown]
  - Lung hyperinflation [Unknown]
  - Paraesthesia [Unknown]
  - Lower respiratory tract infection [Not Recovered/Not Resolved]
  - Cough [Unknown]

NARRATIVE: CASE EVENT DATE: 20100907
